FAERS Safety Report 19063375 (Version 1)
Quarter: 2021Q1

REPORT INFORMATION
  Report Type: Spontaneous
  Country: FR (occurrence: FR)
  Receive Date: 20210326
  Receipt Date: 20210326
  Transmission Date: 20210420
  Serious: Yes (Hospitalization)
  Sender: FDA-Public Use
  Company Number: NVSC2021FR060898

PATIENT
  Age: 12 Year
  Sex: Female
  Weight: 43.2 kg

DRUGS (5)
  1. PROPRANOLOL [Suspect]
     Active Substance: PROPRANOLOL HYDROCHLORIDE
     Indication: SUICIDE ATTEMPT
     Dosage: 2000 MG TOTAL
     Route: 048
     Dates: start: 20210206, end: 20210206
  2. TRAMADOL. [Suspect]
     Active Substance: TRAMADOL
     Indication: SUICIDE ATTEMPT
     Dosage: 750 MG TOTAL
     Route: 048
     Dates: start: 20210206, end: 20210206
  3. PARACETAMOL [Suspect]
     Active Substance: ACETAMINOPHEN
     Indication: SUICIDE ATTEMPT
     Dosage: 6500 MG TOTAL
     Route: 048
     Dates: start: 20210206, end: 20210206
  4. THYROZOL [Suspect]
     Active Substance: METHIMAZOLE
     Indication: SUICIDE ATTEMPT
     Dosage: 300 MG TOTAL
     Route: 048
     Dates: start: 20210206, end: 20210206
  5. SERTRALINE [Suspect]
     Active Substance: SERTRALINE HYDROCHLORIDE
     Indication: SUICIDE ATTEMPT
     Dosage: 100 MG TOTAL
     Route: 048
     Dates: start: 20210206, end: 20210206

REACTIONS (2)
  - Somnolence [Recovered/Resolved]
  - Generalised tonic-clonic seizure [Recovered/Resolved]

NARRATIVE: CASE EVENT DATE: 20210206
